FAERS Safety Report 9752462 (Version 1)
Quarter: 2013Q4

REPORT INFORMATION
  Report Type: Spontaneous
  Country: JP (occurrence: JP)
  Receive Date: 20131213
  Receipt Date: 20131213
  Transmission Date: 20140711
  Serious: Yes (Other)
  Sender: FDA-Public Use
  Company Number: JP-SA-2013SA129490

PATIENT
  Age: 70 Year
  Sex: Male

DRUGS (1)
  1. MYSLEE [Suspect]
     Indication: PRODUCT USED FOR UNKNOWN INDICATION
     Route: 048

REACTIONS (5)
  - Fall [Unknown]
  - Tooth fracture [Unknown]
  - Laceration [Unknown]
  - Skin exfoliation [Unknown]
  - Medication error [Unknown]
